FAERS Safety Report 5553319-5 (Version None)
Quarter: 2007Q4

REPORT INFORMATION
  Report Type: 
  Country: None (occurrence: None)
  Receive Date: 20071213
  Receipt Date: 20071203
  Transmission Date: 20080405
  Serious: Yes (Other)
  Sender: FDA-Public Use
  Company Number: NO-RB-008707-07

PATIENT
  Age: 49 Year
  Sex: Male

DRUGS (4)
  1. SUBOXONE [Suspect]
     Dosage: ^16/4 MG^ DAILY.
     Route: 065
  2. CANNABIS [Concomitant]
     Indication: DRUG USE FOR UNKNOWN INDICATION
     Dosage: DOSAGE UNKNOWN
     Route: 065
  3. BENZODIAZEPINES (UNSPECIFIED) [Concomitant]
     Indication: DRUG USE FOR UNKNOWN INDICATION
     Dosage: DOSAGE UNKNOWN
     Route: 065
  4. SUBUTEX [Concomitant]
     Indication: DRUG USE FOR UNKNOWN INDICATION
     Dosage: DOSAGE UNKNOWN
     Route: 065

REACTIONS (4)
  - MENTAL DISORDER [None]
  - SUBSTANCE ABUSE [None]
  - WEIGHT DECREASED [None]
  - WITHDRAWAL SYNDROME [None]
